FAERS Safety Report 6918985-8 (Version None)
Quarter: 2010Q3

REPORT INFORMATION
  Report Type: 
  Country: None (occurrence: None)
  Receive Date: 20100811
  Receipt Date: 20100802
  Transmission Date: 20110219
  Serious: Yes (Other)
  Sender: FDA-Public Use
  Company Number: US-ASTRAZENECA-2010SE36000

PATIENT
  Sex: Female

DRUGS (2)
  1. NEXIUM [Suspect]
     Indication: GASTROOESOPHAGEAL REFLUX DISEASE
     Dosage: ONE CAPSULE DAILY
     Route: 048
  2. NEXIUM [Suspect]
     Dosage: ONE CAPSULE EVERY OTHER DAY
     Route: 048

REACTIONS (3)
  - BARRETT'S OESOPHAGUS [None]
  - GASTRIC POLYPS [None]
  - HAEMORRHAGE [None]
